FAERS Safety Report 14833206 (Version 1)
Quarter: 2018Q2

REPORT INFORMATION
  Report Type: Report from Study
  Country: KR (occurrence: KR)
  Receive Date: 20180501
  Receipt Date: 20180501
  Transmission Date: 20180711
  Serious: Yes (Hospitalization, Other)
  Sender: FDA-Public Use
  Company Number: KR-GLAXOSMITHKLINE-KR2018GSK075407

PATIENT
  Age: 63 Year
  Sex: Male
  Weight: 46 kg

DRUGS (1)
  1. UMECLIDINIUM BR+VILANTEROL TRIFENATATE [Suspect]
     Active Substance: UMECLIDINIUM BROMIDE\VILANTEROL TRIFENATATE
     Indication: CHRONIC OBSTRUCTIVE PULMONARY DISEASE
     Dosage: 62.5/25 MCG, 1D
     Route: 055
     Dates: start: 20171219

REACTIONS (1)
  - Pneumonia [Recovered/Resolved]

NARRATIVE: CASE EVENT DATE: 20180311
